FAERS Safety Report 7725345-9 (Version None)
Quarter: 2011Q3

REPORT INFORMATION
  Report Type: 
  Country: None (occurrence: None)
  Receive Date: 20110830
  Receipt Date: 20110719
  Transmission Date: 20111222
  Serious: Yes (Death)
  Sender: FDA-Public Use
  Company Number: GER/GER/11/0019186

PATIENT
  Age: 74 Year
  Sex: Male

DRUGS (1)
  1. METFORMIN HYDROCHLORIDE [Suspect]
     Indication: DIABETES MELLITUS
     Dosage: 850 MG, ORAL
     Route: 048
     Dates: end: 20110126

REACTIONS (4)
  - RENAL FAILURE ACUTE [None]
  - FALL [None]
  - DYSPNOEA [None]
  - LACTIC ACIDOSIS [None]
